FAERS Safety Report 18036463 (Version 2)
Quarter: 2020Q3

REPORT INFORMATION
  Report Type: Spontaneous
  Country: US (occurrence: US)
  Receive Date: 20200717
  Receipt Date: 20200922
  Transmission Date: 20201103
  Serious: Yes (Other)
  Sender: FDA-Public Use
  Company Number: US-DRREDDYS-USA/USA/20/0125089

PATIENT
  Sex: Female

DRUGS (1)
  1. QUETIAPINE FUMARATE TABLETS [Suspect]
     Active Substance: QUETIAPINE FUMARATE
     Indication: BIPOLAR I DISORDER

REACTIONS (6)
  - Feeling abnormal [Recovering/Resolving]
  - Hypersomnia [Recovering/Resolving]
  - Sedation [Recovering/Resolving]
  - Depression suicidal [Recovering/Resolving]
  - Somnolence [Recovering/Resolving]
  - Fall [Recovering/Resolving]
